FAERS Safety Report 5087780-X (Version None)
Quarter: 2006Q3

REPORT INFORMATION
  Report Type: 
  Country: None (occurrence: None)
  Receive Date: 20060824
  Receipt Date: 20060815
  Transmission Date: 20061208
  Serious: Yes (Death)
  Sender: FDA-Public Use
  Company Number: JP-ROCHE-459818

PATIENT
  Age: 50 Year
  Sex: Male

DRUGS (2)
  1. TAMIFLU [Suspect]
     Indication: INFLUENZA
     Route: 048
     Dates: start: 20060710, end: 20060714
  2. CALONAL [Concomitant]
     Dosage: THE GENERIC DRUG NAME WAS REPORTED AS: ACETAMINOPHEN.
     Route: 048
     Dates: start: 20060710, end: 20060714

REACTIONS (1)
  - HEPATITIS FULMINANT [None]
